FAERS Safety Report 5411751-4 (Version None)
Quarter: 2007Q3

REPORT INFORMATION
  Report Type: 
  Country: None (occurrence: None)
  Receive Date: 20070813
  Receipt Date: 20070809
  Transmission Date: 20080115
  Serious: Yes (Other)
  Sender: FDA-Public Use
  Company Number: PHNU2007DE02676

PATIENT
  Sex: Male

DRUGS (2)
  1. TEGRETOL [Suspect]
     Indication: EPILEPSY
     Dosage: 800 MG/D
     Route: 048
     Dates: start: 20050101
  2. KEPPRA [Suspect]
     Dosage: 500 MG, BID
     Route: 048
     Dates: start: 20070601, end: 20070701

REACTIONS (16)
  - ARTERIAL STENOSIS [None]
  - BLOOD ALKALINE PHOSPHATASE INCREASED [None]
  - BLOOD CHOLESTEROL INCREASED [None]
  - BLOOD OSMOLARITY DECREASED [None]
  - BRAIN NATRIURETIC PEPTIDE INCREASED [None]
  - DRUG INTERACTION [None]
  - DRUG LEVEL ABOVE THERAPEUTIC [None]
  - HAEMATOCRIT DECREASED [None]
  - HAEMOGLOBIN DECREASED [None]
  - HYPONATRAEMIA [None]
  - LYMPHOCYTE PERCENTAGE DECREASED [None]
  - PLATELET COUNT INCREASED [None]
  - PROTEIN URINE PRESENT [None]
  - RED BLOOD CELL COUNT DECREASED [None]
  - TROPONIN I INCREASED [None]
  - URINE ANALYSIS ABNORMAL [None]
